FAERS Safety Report 7769777-1 (Version None)
Quarter: 2011Q3

REPORT INFORMATION
  Report Type: 
  Country: None (occurrence: None)
  Receive Date: 20110922
  Receipt Date: 20110511
  Transmission Date: 20111222
  Serious: Yes (Other)
  Sender: FDA-Public Use
  Company Number: US-ASTRAZENECA-2009UW03108

PATIENT
  Age: 550 Month
  Sex: Female
  Weight: 101.2 kg

DRUGS (14)
  1. PEVEXA [Concomitant]
     Dates: start: 20080101
  2. VALIUM [Concomitant]
     Route: 048
     Dates: start: 20080206
  3. GEODON [Concomitant]
  4. RISPERDAL [Concomitant]
     Dates: start: 20080101
  5. PEVEXA [Concomitant]
     Dates: start: 20080206
  6. LAMICTAL [Concomitant]
     Dates: start: 20080206
  7. COGENTIN [Concomitant]
     Dates: start: 20080206
  8. REQUIP [Concomitant]
     Dates: start: 20080206
  9. VALIUM [Concomitant]
     Dates: start: 20080101
  10. REMERON [Concomitant]
     Dates: start: 20080101
  11. RISPERDAL [Concomitant]
     Dates: start: 20080206
  12. SEROQUEL [Suspect]
     Indication: BIPOLAR DISORDER
     Dosage: 300 MG - 400 MG
     Route: 048
     Dates: start: 20070601, end: 20081201
  13. SEROQUEL [Suspect]
     Route: 048
     Dates: start: 20080206
  14. REMERON [Concomitant]
     Dates: start: 20080206

REACTIONS (2)
  - DIABETES MELLITUS [None]
  - PANCREATITIS [None]
